FAERS Safety Report 5614728-9 (Version None)
Quarter: 2008Q1

REPORT INFORMATION
  Report Type: 
  Country: None (occurrence: None)
  Receive Date: 20080201
  Receipt Date: 20080116
  Transmission Date: 20080703
  Serious: Yes (Hospitalization)
  Sender: FDA-Public Use
  Company Number: 013400

PATIENT
  Age: 74 Year
  Sex: Female

DRUGS (3)
  1. PRIALT [Suspect]
     Indication: SPINAL CORD INJURY
     Dosage: UG, ONCE/HOUR, INTRATHECAL
     Route: 037
  2. MORPHINE [Concomitant]
  3. PERCOCET [Concomitant]

REACTIONS (4)
  - CONFUSIONAL STATE [None]
  - DISORIENTATION [None]
  - HALLUCINATION, VISUAL [None]
  - PNEUMONIA [None]
